FAERS Safety Report 16307252 (Version 1)
Quarter: 2020Q3

REPORT INFORMATION
  Report Type: Spontaneous
  Country: DE (occurrence: DE)
  Receive Date: 20190514
  Receipt Date: 20190514
  Transmission Date: 20201104
  Serious: Yes (Hospitalization, Other)
  Sender: FDA-Public Use
  Company Number: DE-AUROBINDO-AUR-APL-2019-025544

PATIENT

DRUGS (9)
  1. IBANDRONIC ACID CONCENTRATE FOR SOLUTION FOR INFUSION [Suspect]
     Active Substance: IBANDRONIC ACID
     Indication: OSTEOLYSIS
     Dosage: 6 MILLIGRAM, 4 WEEK
     Route: 042
  2. CAPECITABINE. [Suspect]
     Active Substance: CAPECITABINE
     Indication: BREAST CANCER
     Dosage: 1750 MILLIGRAM, ONCE A DAY
     Route: 048
  3. BEVACIZUMAB. [Suspect]
     Active Substance: BEVACIZUMAB
     Indication: BREAST CANCER
     Dosage: 1020 MILLIGRAM, 3 WEEK
     Route: 042
     Dates: start: 20120213
  4. BEVACIZUMAB. [Suspect]
     Active Substance: BEVACIZUMAB
     Dosage: 1020 MILLIGRAM, 3 WEEK
     Route: 042
     Dates: start: 20130417
  5. ARCOXIA [Concomitant]
     Active Substance: ETORICOXIB
     Indication: OSTEOLYSIS
     Dosage: 60 MILLIGRAM
     Route: 048
     Dates: start: 20130730, end: 20131112
  6. IBANDRONIC ACID. [Suspect]
     Active Substance: IBANDRONIC ACID
     Indication: PAIN
     Dosage: UNK
     Route: 065
  7. ARCOXIA [Concomitant]
     Active Substance: ETORICOXIB
     Indication: PAIN
     Dosage: UNK
     Route: 065
  8. ZOMETA [Concomitant]
     Active Substance: ZOLEDRONIC ACID
     Indication: BREAST CANCER
     Dosage: 4 MILLIGRAM, 4 WEEK
     Route: 042
     Dates: start: 20130514
  9. FENTANYL. [Concomitant]
     Active Substance: FENTANYL
     Indication: POLYNEUROPATHY
     Dosage: 12 MICROGRAM
     Route: 065
     Dates: start: 201307, end: 20130730

REACTIONS (1)
  - Pyrexia [Recovered/Resolved]

NARRATIVE: CASE EVENT DATE: 20130515
